FAERS Safety Report 4279145-5 (Version None)
Quarter: 2004Q1

REPORT INFORMATION
  Report Type: 
  Country: None (occurrence: None)
  Receive Date: 20040127
  Receipt Date: 20040122
  Transmission Date: 20041129
  Serious: Yes (Death, Hospitalization)
  Sender: FDA-Public Use
  Company Number: 200410271FR

PATIENT
  Age: 53 Year
  Sex: Male

DRUGS (8)
  1. LOVENOX [Suspect]
     Indication: THROMBOSIS PROPHYLAXIS
     Route: 058
     Dates: start: 20031101, end: 20031113
  2. MOTILIUM [Concomitant]
     Indication: NAUSEA
     Route: 048
  3. SOLU-MEDROL [Concomitant]
     Route: 048
  4. CLONAZEPAM [Concomitant]
     Route: 048
  5. OGAST [Concomitant]
     Route: 048
  6. TRIFLUCAN [Concomitant]
     Indication: ORAL CANDIDIASIS
     Route: 048
  7. SPASFON LYOC [Concomitant]
     Route: 048
     Dates: start: 20031115, end: 20031115
  8. SMECTA [Concomitant]
     Route: 048
     Dates: start: 20031114, end: 20031114

REACTIONS (3)
  - ANTIBODY TEST POSITIVE [None]
  - THROMBOCYTOPENIA [None]
  - THROMBOSIS [None]
